FAERS Safety Report 6664723-6 (Version None)
Quarter: 2010Q1

REPORT INFORMATION
  Report Type: 
  Country: None (occurrence: None)
  Receive Date: 20100330
  Receipt Date: 20091218
  Transmission Date: 20100710
  Serious: Yes (Hospitalization, Other)
  Sender: FDA-Public Use
  Company Number: 6056822

PATIENT
  Age: 33 Year
  Sex: Female

DRUGS (6)
  1. LEVOTHYROXINE (LEVOTHYROXINE, LEVOTHYROXINE SODIUM) [Suspect]
     Indication: DRUG USE FOR UNKNOWN INDICATION
     Dosage: 175 MCG (500 MCG, 2 IN 1 WK) 200 MCG
     Route: 042
  2. DIMENHYDRINATE [Suspect]
     Indication: DRUG USE FOR UNKNOWN INDICATION
     Route: 042
  3. CALCIUM (CALCIUM) [Concomitant]
  4. RADIOIODINE THERAPY [Concomitant]
  5. VITAMIN SUPPLEMENTATION [Concomitant]
  6. H2 RECEPTOR ANTAGONIST [Concomitant]

REACTIONS (13)
  - BLOOD CALCIUM DECREASED [None]
  - CACHEXIA [None]
  - CAESAREAN SECTION [None]
  - DRUG EXPOSURE DURING PREGNANCY [None]
  - ELECTROLYTE IMBALANCE [None]
  - FATIGUE [None]
  - HAEMATEMESIS [None]
  - HYPEREMESIS GRAVIDARUM [None]
  - HYPOPHAGIA [None]
  - KETONURIA [None]
  - NAUSEA [None]
  - OESOPHAGEAL RUPTURE [None]
  - WEIGHT DECREASED [None]
